FAERS Safety Report 8598636-X (Version None)
Quarter: 2012Q3

REPORT INFORMATION
  Report Type: 
  Country: None (occurrence: None)
  Receive Date: 20120816
  Receipt Date: 20120813
  Transmission Date: 20120928
  Serious: Yes (Hospitalization, Other)
  Sender: FDA-Public Use
  Company Number: FR-PFIZER INC-2012086892

PATIENT
  Age: 69 Year
  Sex: Male

DRUGS (3)
  1. ASPIRIN [Concomitant]
  2. LATANOPROST [Suspect]
     Indication: OCULAR HYPERTENSION
     Dosage: 1 DROP/DAY
     Route: 047
     Dates: start: 20100601, end: 20120301
  3. ATORVASTATIN [Concomitant]

REACTIONS (2)
  - LOSS OF CONSCIOUSNESS [None]
  - MALAISE [None]
